FAERS Safety Report 10135776 (Version 2)
Quarter: 2014Q2

REPORT INFORMATION
  Report Type: Spontaneous
  Country: US (occurrence: US)
  Receive Date: 20140428
  Receipt Date: 20140514
  Transmission Date: 20141212
  Serious: Yes (Other)
  Sender: FDA-Public Use
  Company Number: US-ABBVIE-14P-163-1228914-00

PATIENT
  Sex: Male

DRUGS (3)
  1. CREON [Suspect]
     Indication: PANCREATITIS
  2. CREON [Suspect]
     Dates: start: 20120210
  3. LACTULOSE [Concomitant]
     Indication: CONSTIPATION

REACTIONS (12)
  - Fall [Recovered/Resolved]
  - Intervertebral disc protrusion [Not Recovered/Not Resolved]
  - Vagus nerve disorder [Recovered/Resolved]
  - Compression fracture [Unknown]
  - Abdominal discomfort [Not Recovered/Not Resolved]
  - Proctalgia [Not Recovered/Not Resolved]
  - Scab [Not Recovered/Not Resolved]
  - Proctalgia [Not Recovered/Not Resolved]
  - Lipids increased [Unknown]
  - Gastrointestinal pain [Unknown]
  - Pain [Unknown]
  - Diarrhoea [Unknown]
